FAERS Safety Report 21772184 (Version 2)
Quarter: 2023Q1

REPORT INFORMATION
  Report Type: Spontaneous
  Country: US (occurrence: US)
  Receive Date: 20221223
  Receipt Date: 20230328
  Transmission Date: 20230417
  Serious: No
  Sender: FDA-Public Use
  Company Number: US-CTI BIOPHARMA-2022US03148

PATIENT

DRUGS (1)
  1. VONJO [Suspect]
     Active Substance: PACRITINIB
     Indication: Myelodysplastic syndrome
     Dosage: 200 MG, BID
     Route: 048
     Dates: start: 20220923

REACTIONS (8)
  - Swelling [Unknown]
  - Cellulitis [Unknown]
  - Product dose omission issue [Unknown]
  - Haemoglobin increased [Unknown]
  - Splenomegaly [Unknown]
  - Abdominal discomfort [Unknown]
  - General physical condition abnormal [Unknown]
  - Diarrhoea [Unknown]
